FAERS Safety Report 16791264 (Version 1)
Quarter: 2019Q3

REPORT INFORMATION
  Report Type: Spontaneous
  Country: US (occurrence: US)
  Receive Date: 20190719
  Receipt Date: 20190719
  Transmission Date: 20191005
  Serious: Yes (Hospitalization)
  Sender: FDA-Public Use
  Company Number: None

PATIENT
  Age: 17 Month
  Sex: Male

DRUGS (5)
  1. LEVOTHYROXIN TAB [Concomitant]
  2. SOD CHLORIDE TAB [Concomitant]
  3. VITAMIN D3 ORO [Concomitant]
  4. SILDENAFIL 2.5MG PER ML ORAL [Suspect]
     Active Substance: SILDENAFIL
     Indication: PULMONARY HYPERTENSION
     Dosage: ?          OTHER FREQUENCY:Q 8 HRS;?
     Dates: start: 20190427
  5. D-VI-SOL LIQ [Concomitant]

REACTIONS (3)
  - Product dose omission [None]
  - Dehydration [None]
  - Viral infection [None]

NARRATIVE: CASE EVENT DATE: 20190718
